FAERS Safety Report 9447668 (Version 1)
Quarter: 2013Q3

REPORT INFORMATION
  Report Type: Spontaneous
  Country: IT (occurrence: IT)
  Receive Date: 20130808
  Receipt Date: 20130808
  Transmission Date: 20140515
  Serious: Yes (Other)
  Sender: FDA-Public Use
  Company Number: IT-JNJFOC-20130801589

PATIENT
  Age: 12 Year
  Sex: Male

DRUGS (1)
  1. RISPERDAL [Suspect]
     Indication: MENTAL RETARDATION
     Route: 048
     Dates: start: 20120628, end: 20130731

REACTIONS (2)
  - Blood creatinine increased [Unknown]
  - Off label use [Unknown]
